FAERS Safety Report 9625084 (Version 1)
Quarter: 2013Q4

REPORT INFORMATION
  Report Type: Spontaneous
  Country: US (occurrence: None)
  Receive Date: 20131015
  Receipt Date: 20131015
  Transmission Date: 20140711
  Serious: Yes (Death)
  Sender: FDA-Public Use
  Company Number: None

PATIENT
  Age: 80 Year
  Sex: Female
  Weight: 50.8 kg

DRUGS (7)
  1. PRADAXA [Suspect]
     Indication: ATRIAL FIBRILLATION
     Dosage: 1 TABLET, BID, ORAL
     Route: 048
     Dates: start: 20130201, end: 20130918
  2. ALENDRONATE [Concomitant]
  3. DICLOFENAC SODIUM [Concomitant]
  4. LEVOTHYROXINE [Concomitant]
  5. METOPROLOL SUCCINATE [Concomitant]
  6. SIMVASTATIN [Concomitant]
  7. TRAMADOL [Concomitant]

REACTIONS (1)
  - Haemorrhage intracranial [None]
